FAERS Safety Report 5664184-X (Version None)
Quarter: 2008Q1

REPORT INFORMATION
  Report Type: 
  Country: None (occurrence: None)
  Receive Date: 20080312
  Receipt Date: 20080226
  Transmission Date: 20080703
  Serious: Yes (Hospitalization, Other)
  Sender: FDA-Public Use
  Company Number: 2008S1000067

PATIENT
  Age: 61 Year
  Sex: Female
  Weight: 61 kg

DRUGS (15)
  1. CUBICIN [Suspect]
     Indication: INTERVERTEBRAL DISCITIS
     Dosage: 6 MG/KG;Q48H;IV
     Route: 042
     Dates: start: 20080119, end: 20080131
  2. CUBICIN [Suspect]
     Indication: OSTEOMYELITIS
     Dosage: 6 MG/KG;Q48H;IV
     Route: 042
     Dates: start: 20080119, end: 20080131
  3. CUBICIN [Suspect]
     Indication: PSOAS ABSCESS
     Dosage: 6 MG/KG;Q48H;IV
     Route: 042
     Dates: start: 20080119, end: 20080131
  4. CUBICIN [Suspect]
     Indication: STAPHYLOCOCCAL BACTERAEMIA
     Dosage: 6 MG/KG;Q48H;IV
     Route: 042
     Dates: start: 20080119, end: 20080131
  5. LEVOFLOXACIN [Suspect]
     Indication: ENTEROBACTER INFECTION
     Dates: start: 20080125, end: 20080131
  6. LEVOFLOXACIN [Suspect]
     Indication: URINARY TRACT INFECTION
     Dates: start: 20080125, end: 20080131
  7. NAFCILLIN SODIUM [Concomitant]
  8. VANCOMYCIN [Concomitant]
  9. LEVOFLOXACIN [Concomitant]
  10. ADVAIR DISKUS 100/50 [Concomitant]
  11. DOCUSATE [Concomitant]
  12. METOPROLOL TARTRATE [Concomitant]
  13. MONTELUKAST SODIUM [Concomitant]
  14. PANTOPRAZOLE SODIUM [Concomitant]
  15. TIGECYCLINE [Concomitant]

REACTIONS (3)
  - BLOOD CREATINE PHOSPHOKINASE INCREASED [None]
  - IMMUNOSUPPRESSION [None]
  - LEUKOPENIA [None]
